FAERS Safety Report 9191517 (Version 3)
Quarter: 2013Q4

REPORT INFORMATION
  Report Type: Spontaneous
  Country: DK (occurrence: DK)
  Receive Date: 20130326
  Receipt Date: 20131021
  Transmission Date: 20140711
  Serious: Yes (Hospitalization)
  Sender: FDA-Public Use
  Company Number: DK-TEVA-393355ISR

PATIENT
  Age: 12 Year
  Sex: Female
  Weight: 32.9 kg

DRUGS (22)
  1. TEMOZOLOMIDE [Suspect]
     Indication: BRAIN NEOPLASM MALIGNANT
     Dosage: 230 MILLIGRAM DAILY; 230 MG, QD
     Route: 048
     Dates: start: 20121105, end: 20121109
  2. TEMOZOLOMIDE [Suspect]
     Dosage: 80 MG, QD
     Route: 048
     Dates: start: 20120625, end: 20120701
  3. TEMOZOLOMIDE [Suspect]
     Dosage: 80 MG, QD
     Route: 048
     Dates: start: 20120702, end: 20120708
  4. TEMOZOLOMIDE [Suspect]
     Dosage: 85 MG, QD
     Route: 048
     Dates: start: 20120709, end: 20120715
  5. TEMOZOLOMIDE [Suspect]
     Dosage: 85 MG, QD
     Route: 048
     Dates: start: 20120716, end: 20120722
  6. TEMOZOLOMIDE [Suspect]
     Dosage: 85 MG, QD
     Route: 048
     Dates: start: 20120723, end: 20120729
  7. TEMOZOLOMIDE [Suspect]
     Dosage: 85 MG, QD
     Route: 048
     Dates: start: 20120730, end: 20120803
  8. TEMOZOLOMIDE [Suspect]
     Dosage: 175 MG, QD
     Route: 048
     Dates: start: 20120903, end: 20120907
  9. TEMOZOLOMIDE [Suspect]
     Dosage: 230 UNK, UNK
     Route: 048
     Dates: start: 20121208
  10. TEMOZOLOMIDE [Suspect]
     Dosage: 230 MG, QD
     Route: 048
     Dates: start: 20130107, end: 20130111
  11. DEXAMETHASONE [Concomitant]
     Dosage: 2 MG, QD
     Route: 048
     Dates: start: 20120625, end: 20120803
  12. ACETAMINOPHEN [Concomitant]
     Dosage: UNK
     Dates: start: 20120525, end: 20120601
  13. ACETAMINOPHEN [Concomitant]
     Dosage: UNK, PRN
     Dates: start: 20120622
  14. ONDANSETRON [Concomitant]
     Dosage: UNK
     Dates: start: 20120525, end: 20120601
  15. ONDANSETRON [Concomitant]
     Dosage: UNK
     Dates: start: 20120625
  16. MORFIN [Concomitant]
     Dosage: UNK
     Dates: start: 20120525, end: 20120601
  17. CEFUROXIME [Concomitant]
     Dosage: UNK
     Dates: start: 20120525, end: 20120526
  18. DROPERIDOL [Concomitant]
     Dosage: UNK
     Dates: start: 20120525, end: 20120525
  19. DOTAREM [Concomitant]
     Dosage: UNK
     Dates: start: 20120614, end: 20120615
  20. SOLU-MEDROL [Concomitant]
     Dosage: 40 MILLIGRAM DAILY; 20 MG, BID
     Route: 042
     Dates: start: 20120525, end: 20120528
  21. SULFOTRIM [Concomitant]
     Indication: PROPHYLAXIS
     Dosage: UNK
     Dates: start: 20120625
  22. EMLA [Concomitant]

REACTIONS (1)
  - Herpes zoster [Recovered/Resolved]
